FAERS Safety Report 24002684 (Version 2)
Quarter: 2024Q3

REPORT INFORMATION
  Report Type: Report from Study
  Country: CA (occurrence: CA)
  Receive Date: 20240624
  Receipt Date: 20240709
  Transmission Date: 20241017
  Serious: Yes (Hospitalization)
  Sender: AMGEN
  Company Number: CA-AMGEN-CANSL2023141096

PATIENT
  Age: 61 Year
  Sex: Male
  Weight: 62 kg

DRUGS (7)
  1. MVASI [Suspect]
     Active Substance: BEVACIZUMAB-AWWB
     Indication: Colorectal cancer metastatic
     Dosage: 282 MILLIGRAM, Q2WK
     Route: 042
     Dates: start: 20230731
  2. MVASI [Suspect]
     Active Substance: BEVACIZUMAB-AWWB
     Dosage: 282 MILLIGRAM, Q2WK
     Route: 042
  3. MVASI [Suspect]
     Active Substance: BEVACIZUMAB-AWWB
     Dosage: 282 MILLIGRAM, Q2WK
     Route: 042
  4. MVASI [Suspect]
     Active Substance: BEVACIZUMAB-AWWB
     Dosage: 282 MILLIGRAM, Q2WK
     Route: 042
     Dates: start: 20231228
  5. MVASI [Suspect]
     Active Substance: BEVACIZUMAB-AWWB
     Dosage: 325 MILLIGRAM, Q2WK
     Route: 042
  6. MVASI [Suspect]
     Active Substance: BEVACIZUMAB-AWWB
     Dosage: 325 MILLIGRAM, Q2WK
     Route: 042
  7. LONSURF [Concomitant]
     Active Substance: TIPIRACIL HYDROCHLORIDE\TRIFLURIDINE
     Dosage: UNK

REACTIONS (11)
  - Intestinal obstruction [Unknown]
  - Diarrhoea [Not Recovered/Not Resolved]
  - Urinary tract infection [Unknown]
  - Blood magnesium decreased [Unknown]
  - Ill-defined disorder [Unknown]
  - Sleep disorder [Unknown]
  - Stoma site discomfort [Not Recovered/Not Resolved]
  - Neck pain [Not Recovered/Not Resolved]
  - Abdominal pain [Recovered/Resolved]
  - Fatigue [Not Recovered/Not Resolved]
  - Pain [Recovered/Resolved]

NARRATIVE: CASE EVENT DATE: 20230801
